FAERS Safety Report 14672453 (Version 1)
Quarter: 2018Q1

REPORT INFORMATION
  Report Type: Spontaneous
  Country: US (occurrence: US)
  Receive Date: 20180323
  Receipt Date: 20180323
  Transmission Date: 20180509
  Serious: No
  Sender: FDA-Public Use
  Company Number: US-PFIZER INC-2018117672

PATIENT
  Age: 52 Year
  Sex: Female
  Weight: 105 kg

DRUGS (2)
  1. ZYVOX [Suspect]
     Active Substance: LINEZOLID
     Indication: ARTHRITIS BACTERIAL
  2. ZYVOX [Suspect]
     Active Substance: LINEZOLID
     Indication: OSTEOMYELITIS
     Dosage: 600 MG, 2X/DAY
     Dates: end: 20180304

REACTIONS (2)
  - Product use issue [Unknown]
  - Product use in unapproved indication [Unknown]
